FAERS Safety Report 10237159 (Version 1)
Quarter: 2014Q1

REPORT INFORMATION
  Report Type: Spontaneous
  Country: US (occurrence: None)
  Receive Date: 20140306
  Receipt Date: 20140306
  Transmission Date: 20141002
  Serious: Yes (Hospitalization, Other)
  Sender: FDA-Public Use
  Company Number: 163-21880-13081594

PATIENT
  Age: 69 Year
  Sex: Male

DRUGS (10)
  1. REVLIMID (LENALIDOMIDE) (10 MILLIGRAM, CAPSULES) [Suspect]
     Indication: MYELODYSPLASTIC SYNDROME
     Dosage: UNK
     Route: 048
     Dates: start: 20111201, end: 2012
  2. ARANESP (DARBEPOETIN ALFA) (INJECTION) [Concomitant]
  3. ASPIRIN (ACETYLSALICYLIC ACID) (UNKNOWN) (ACETYLSALICYLIC ACID) [Concomitant]
  4. COREG (CARVEDILOL (UNKNOWN) [Concomitant]
  5. EXJADE (DEFERASIOROX) (UNKNOWN) [Concomitant]
  6. FELODIPINE (UNKNOWN) [Concomitant]
  7. FLUCIONOLONE ACETONIDE (UNKNOWN) [Concomitant]
  8. FOLIC ACID (UNKNOWN) [Concomitant]
  9. HYDROCHLOROTHIAZIDE (UNKNOWN) [Concomitant]
  10. PACKED RED BLOOD CELLS (CONCENTRATED) (UNKNOWN) [Concomitant]

REACTIONS (6)
  - Acute respiratory failure [None]
  - Thrombocytopenia [None]
  - Neutrophil count decreased [None]
  - Febrile neutropenia [None]
  - White blood cell count decreased [None]
  - Bronchitis [None]
